FAERS Safety Report 9602411 (Version 2)
Quarter: 2013Q4

REPORT INFORMATION
  Report Type: Spontaneous
  Country: ES (occurrence: ES)
  Receive Date: 20131007
  Receipt Date: 20131008
  Transmission Date: 20140711
  Serious: Yes (Life-Threatening, Hospitalization)
  Sender: FDA-Public Use
  Company Number: ES-JNJFOC-20131002731

PATIENT
  Age: 54 Year
  Sex: Male

DRUGS (6)
  1. XARELTO [Suspect]
     Indication: CEREBROVASCULAR ACCIDENT PROPHYLAXIS
     Route: 048
     Dates: start: 201308, end: 201308
  2. XARELTO [Suspect]
     Indication: ATRIAL FIBRILLATION
     Route: 048
     Dates: start: 201308, end: 201308
  3. HYDROCHLOROTHIAZIDE [Concomitant]
     Indication: HYPERTENSION
     Route: 048
  4. APOCARD [Concomitant]
     Route: 048
  5. TELMISARTAN [Concomitant]
     Indication: HYPERTENSION
     Route: 048
  6. TROMALYT [Concomitant]
     Route: 048

REACTIONS (5)
  - Rash generalised [Recovered/Resolved]
  - Anaphylactic shock [Recovered/Resolved]
  - Hypotension [Recovered/Resolved]
  - Swelling face [Recovered/Resolved]
  - Pruritus generalised [Recovered/Resolved]
